FAERS Safety Report 12246111 (Version 1)
Quarter: 2016Q2

REPORT INFORMATION
  Report Type: Spontaneous
  Country: US (occurrence: US)
  Receive Date: 20160407
  Receipt Date: 20160407
  Transmission Date: 20160815
  Serious: Yes (Other)
  Sender: FDA-Public Use
  Company Number: US-PURDUE-USA-2016-0130081

PATIENT
  Sex: Female

DRUGS (1)
  1. BUTRANS [Suspect]
     Active Substance: BUPRENORPHINE
     Indication: PAIN
     Dosage: 15 MCG/HR, WEEKLY
     Route: 062
     Dates: start: 201602

REACTIONS (4)
  - Unresponsive to stimuli [Unknown]
  - Nausea [Unknown]
  - Mental status changes [Unknown]
  - Vomiting [Unknown]

NARRATIVE: CASE EVENT DATE: 20160404
